FAERS Safety Report 4942457-3 (Version None)
Quarter: 2006Q1

REPORT INFORMATION
  Report Type: 
  Country: None (occurrence: None)
  Receive Date: 20060313
  Receipt Date: 20050222
  Transmission Date: 20060701
  Serious: No
  Sender: FDA-Public Use
  Company Number: US-GLAXOSMITHKLINE-A0546684A

PATIENT
  Sex: Male

DRUGS (1)
  1. AMERICAN FARE NICOTINE GUM 2MG, ORIGINAL [Suspect]
     Indication: DRUG USE FOR UNKNOWN INDICATION

REACTIONS (3)
  - GINGIVAL PAIN [None]
  - MOUTH INJURY [None]
  - TOOTH FRACTURE [None]
